FAERS Safety Report 22030792 (Version 1)
Quarter: 2023Q1

REPORT INFORMATION
  Report Type: Spontaneous
  Country: US (occurrence: US)
  Receive Date: 20230223
  Receipt Date: 20230223
  Transmission Date: 20230417
  Serious: No
  Sender: FDA-Public Use
  Company Number: US-SA-SAC20230220000586

PATIENT
  Age: 15 Year
  Sex: Male
  Weight: 43.3 kg

DRUGS (4)
  1. DUPIXENT [Suspect]
     Active Substance: DUPILUMAB
     Indication: Dermatitis atopic
     Dosage: 200 MG, QOW
     Route: 058
     Dates: start: 202204
  2. ISOTRETINOIN [Suspect]
     Active Substance: ISOTRETINOIN
     Indication: Acne
  3. SOMATROPIN [Suspect]
     Active Substance: SOMATROPIN
  4. GENOTROPIN [Concomitant]
     Active Substance: SOMATROPIN

REACTIONS (5)
  - Acne [Not Recovered/Not Resolved]
  - Dry skin [Not Recovered/Not Resolved]
  - Epistaxis [Not Recovered/Not Resolved]
  - Erythema [Not Recovered/Not Resolved]
  - Skin exfoliation [Not Recovered/Not Resolved]
